FAERS Safety Report 9364956 (Version 3)
Quarter: 2014Q2

REPORT INFORMATION
  Report Type: Spontaneous
  Country: US (occurrence: US)
  Receive Date: 20130624
  Receipt Date: 20140425
  Transmission Date: 20141212
  Serious: Yes (Hospitalization, Disabling, Other)
  Sender: FDA-Public Use
  Company Number: US-009507513-1205USA02099

PATIENT
  Sex: Female
  Weight: 78.5 kg

DRUGS (2)
  1. FOSAMAX [Suspect]
     Indication: OSTEOPOROSIS
     Dosage: 70 MG, QW
     Route: 048
     Dates: end: 201112
  2. ALENDRONATE SODIUM [Suspect]
     Dosage: 70 MG, UNK

REACTIONS (14)
  - Femur fracture [Not Recovered/Not Resolved]
  - Intramedullary rod insertion [Not Recovered/Not Resolved]
  - Osteoporosis [Not Recovered/Not Resolved]
  - Stress fracture [Not Recovered/Not Resolved]
  - Low turnover osteopathy [Not Recovered/Not Resolved]
  - Hypertension [Unknown]
  - Blood cholesterol increased [Unknown]
  - Cardiac valve disease [Unknown]
  - Uterine dilation and curettage [Unknown]
  - Blood magnesium decreased [Unknown]
  - Bursitis [Not Recovered/Not Resolved]
  - Gait disturbance [Unknown]
  - Soft tissue mass [Unknown]
  - Anaemia postoperative [Unknown]
